FAERS Safety Report 22642778 (Version 1)
Quarter: 2023Q2

REPORT INFORMATION
  Report Type: Spontaneous
  Country: DE (occurrence: DE)
  Receive Date: 20230627
  Receipt Date: 20230627
  Transmission Date: 20230722
  Serious: Yes (Death, Other)
  Sender: FDA-Public Use
  Company Number: DE-BRISTOL-MYERS SQUIBB COMPANY-2022-086076

PATIENT
  Age: 74 Year
  Sex: Female
  Weight: 70 kg

DRUGS (25)
  1. LENALIDOMIDE [Suspect]
     Active Substance: LENALIDOMIDE
     Indication: Product used for unknown indication
     Dosage: 25 MILLIGRAM
     Route: 065
     Dates: start: 20150917, end: 20150923
  2. LENALIDOMIDE [Suspect]
     Active Substance: LENALIDOMIDE
     Dosage: 25 MILLIGRAM
     Route: 065
     Dates: start: 20151001, end: 20151014
  3. LENALIDOMIDE [Suspect]
     Active Substance: LENALIDOMIDE
     Dosage: 25 MILLIGRAM
     Route: 065
     Dates: start: 20151022, end: 20151125
  4. LENALIDOMIDE [Suspect]
     Active Substance: LENALIDOMIDE
     Dosage: 20 MILLIGRAM
     Route: 065
     Dates: start: 20151129, end: 20170913
  5. LENALIDOMIDE [Suspect]
     Active Substance: LENALIDOMIDE
     Dosage: UNK
     Route: 065
     Dates: start: 20210401
  6. DEXAMETHASONE [Suspect]
     Active Substance: DEXAMETHASONE
     Indication: Product used for unknown indication
     Dosage: 40 MILLIGRAM
     Route: 065
     Dates: start: 20150917, end: 201511
  7. DEXAMETHASONE [Suspect]
     Active Substance: DEXAMETHASONE
     Dosage: 20 MILLIGRAM
     Route: 065
     Dates: start: 20151119
  8. DEXAMETHASONE [Suspect]
     Active Substance: DEXAMETHASONE
     Dosage: UNK
     Route: 065
     Dates: start: 20210401
  9. BISOPROLOL [Concomitant]
     Active Substance: BISOPROLOL
     Indication: Essential hypertension
     Dosage: 5 MILLIGRAM, ONCE A DAY
     Route: 048
  10. HYDROCHLOROTHIAZIDE [Concomitant]
     Active Substance: HYDROCHLOROTHIAZIDE
     Indication: Product used for unknown indication
     Dosage: 25 MILLIGRAM, ONCE A DAY
     Route: 048
  11. JANUVIA [Concomitant]
     Active Substance: SITAGLIPTIN PHOSPHATE
     Indication: Diabetes mellitus
     Dosage: 100 MILLIGRAM, ONCE A DAY
     Route: 048
  12. LERCANIDIPINO [Concomitant]
     Indication: Product used for unknown indication
     Dosage: 20 MILLIGRAM, ONCE A DAY
     Route: 048
  13. ROCEPHIN [Concomitant]
     Active Substance: CEFTRIAXONE SODIUM
     Indication: Bronchitis
     Dosage: 2 MILLIGRAM, ONCE A DAY (AS NEEDED)
     Route: 042
     Dates: start: 20160912, end: 20160913
  14. RASILEZ [Concomitant]
     Active Substance: ALISKIREN
     Indication: Essential hypertension
     Dosage: 300 MILLIGRAM, ONCE A DAY
     Route: 048
  15. KALINOR-RETARD P [Concomitant]
     Indication: Hypocalcaemia
     Dosage: 600 MILLIGRAM, ONCE A DAY
     Route: 048
     Dates: start: 20151112, end: 20151203
  16. KALINOR-RETARD P [Concomitant]
     Indication: Diarrhoea
     Dosage: 600 MILLIGRAM THRICE PER DAY
     Route: 048
     Dates: start: 20151203
  17. METAMIZOLE [Concomitant]
     Active Substance: METAMIZOLE
     Indication: Back pain
     Dosage: 500 MILLIGRAM AS NEEDED (QID)
     Route: 048
     Dates: start: 20151015
  18. CALCIUM\CHOLECALCIFEROL [Concomitant]
     Active Substance: CALCIUM\CHOLECALCIFEROL
     Indication: Hypocalcaemia
     Dosage: 1250.4 MILLIGRAM, ONCE A DAY
     Route: 048
     Dates: start: 20151105, end: 20151203
  19. CALCIUM\CHOLECALCIFEROL [Concomitant]
     Active Substance: CALCIUM\CHOLECALCIFEROL
     Indication: Prophylaxis
     Dosage: 1250.4 MILLIGRAM, TWO TIMES A DAY
     Route: 048
     Dates: start: 20151203
  20. LOPERAMIDE HYDROCHLORIDE [Concomitant]
     Active Substance: LOPERAMIDE HYDROCHLORIDE
     Indication: Diarrhoea
     Dosage: 2 MILLIGRAM (AS NEEDED)
     Route: 048
     Dates: start: 20151112
  21. VENLAFAXINE HYDROCHLORIDE [Concomitant]
     Active Substance: VENLAFAXINE HYDROCHLORIDE
     Indication: Diarrhoea
     Dosage: 500 MILLILITER, ONCE A DAY
     Route: 042
     Dates: start: 20151112, end: 20151112
  22. Cefuroxim saar [Concomitant]
     Indication: Bronchitis
     Dosage: 500 MILLIGRAM AS NEEDED
     Route: 048
     Dates: start: 20160914, end: 20160919
  23. CLINDAMYCIN PHOSPHATE [Concomitant]
     Active Substance: CLINDAMYCIN PHOSPHATE
     Indication: Tooth extraction
     Dosage: 600 MILLIGRAM
     Route: 048
     Dates: start: 20170203, end: 20170208
  24. ZOMETA [Concomitant]
     Active Substance: ZOLEDRONIC ACID
     Indication: Bone disorder
     Dosage: 4 MILLIGRAM 3 MONTHS
     Route: 042
     Dates: start: 20170406
  25. ZOMETA [Concomitant]
     Active Substance: ZOLEDRONIC ACID
     Dosage: 4 MILLIGRAM AS NEEDED
     Route: 042
     Dates: start: 20151119

REACTIONS (1)
  - Colon cancer metastatic [Fatal]

NARRATIVE: CASE EVENT DATE: 20211201
